FAERS Safety Report 25713093 (Version 2)
Quarter: 2025Q3

REPORT INFORMATION
  Report Type: Spontaneous
  Country: US (occurrence: US)
  Receive Date: 20250822
  Receipt Date: 20250918
  Transmission Date: 20251020
  Serious: Yes (Hospitalization)
  Sender: BOEHRINGER INGELHEIM
  Company Number: US-Komodo Health-a23aa000009bW6zAAE

PATIENT
  Age: 69 Year
  Sex: Male

DRUGS (1)
  1. COMBIVENT RESPIMAT [Suspect]
     Active Substance: ALBUTEROL SULFATE\IPRATROPIUM BROMIDE
     Indication: Chronic obstructive pulmonary disease
     Dosage: 2 PUFFS
     Dates: start: 2012

REACTIONS (4)
  - Carbon dioxide increased [Not Recovered/Not Resolved]
  - Extra dose administered [Unknown]
  - Product container issue [Unknown]
  - Hallucination [Unknown]

NARRATIVE: CASE EVENT DATE: 20250817
